APPROVED DRUG PRODUCT: LISDEXAMFETAMINE DIMESYLATE
Active Ingredient: LISDEXAMFETAMINE DIMESYLATE
Strength: 50MG
Dosage Form/Route: CAPSULE;ORAL
Application: A202836 | Product #004 | TE Code: AB
Applicant: SANDOZ INC
Approved: Jul 26, 2024 | RLD: No | RS: No | Type: RX